FAERS Safety Report 5775575-0 (Version None)
Quarter: 2008Q2

REPORT INFORMATION
  Report Type: 
  Country: None (occurrence: None)
  Receive Date: 20080617
  Receipt Date: 20080612
  Transmission Date: 20081010
  Serious: Yes (Other)
  Sender: FDA-Public Use
  Company Number: DE-JNJFOC-20080603156

PATIENT
  Sex: Female

DRUGS (1)
  1. GALANTAMINE HYDROBROMIDE [Suspect]
     Indication: DRUG USE FOR UNKNOWN INDICATION
     Route: 048

REACTIONS (5)
  - ACCIDENTAL EXPOSURE [None]
  - ARRHYTHMIA [None]
  - HEADACHE [None]
  - HYPERTENSION [None]
  - VOMITING [None]
